FAERS Safety Report 5756714-4 (Version None)
Quarter: 2008Q2

REPORT INFORMATION
  Report Type: 
  Country: None (occurrence: None)
  Receive Date: 20080603
  Receipt Date: 20080521
  Transmission Date: 20081010
  Serious: Yes (Hospitalization)
  Sender: FDA-Public Use
  Company Number: ES-TEVA-172000ISR

PATIENT
  Age: 6 Year
  Sex: Female

DRUGS (7)
  1. METHOTREXATE [Suspect]
  2. VINCRISTINE [Suspect]
  3. DAUNORUBICIN HCL [Suspect]
  4. ASPARAGINASE [Suspect]
  5. CYTARABINE [Suspect]
  6. MERCAPTOPURINE [Suspect]
  7. CORTICOID [Suspect]

REACTIONS (1)
  - REVERSIBLE POSTERIOR LEUKOENCEPHALOPATHY SYNDROME [None]
